FAERS Safety Report 4697547-X (Version None)
Quarter: 2005Q2

REPORT INFORMATION
  Report Type: 
  Country: None (occurrence: None)
  Receive Date: 20050622
  Receipt Date: 20050309
  Transmission Date: 20051028
  Serious: Yes (Hospitalization)
  Sender: FDA-Public Use
  Company Number: US-MERCK-0503USA01667

PATIENT
  Age: 51 Year
  Sex: Male

DRUGS (2)
  1. VIOXX [Suspect]
     Route: 048
     Dates: start: 20010101, end: 20031001
  2. LIPITOR [Concomitant]
     Route: 065
     Dates: end: 20030901

REACTIONS (11)
  - ANAEMIA [None]
  - BENIGN PROSTATIC HYPERPLASIA [None]
  - BLADDER OBSTRUCTION [None]
  - DRUG ABUSER [None]
  - HERNIA [None]
  - HYPOTENSION [None]
  - METABOLIC ACIDOSIS [None]
  - OBSTRUCTIVE UROPATHY [None]
  - PNEUMONIA [None]
  - RENAL FAILURE ACUTE [None]
  - URINARY RETENTION [None]
